FAERS Safety Report 21791701 (Version 2)
Quarter: 2023Q4

REPORT INFORMATION
  Report Type: Spontaneous
  Country: JP (occurrence: JP)
  Receive Date: 20221229
  Receipt Date: 20231228
  Transmission Date: 20240110
  Serious: Yes (Other)
  Sender: FDA-Public Use
  Company Number: JP-SA-2022SA521007

PATIENT

DRUGS (1)
  1. DUPIXENT [Suspect]
     Active Substance: DUPILUMAB
     Indication: Asthma
     Dosage: DAILY DOSE: 300 MG
     Route: 058

REACTIONS (3)
  - Eosinophilic granulomatosis with polyangiitis [Recovered/Resolved]
  - Pyrexia [Recovered/Resolved]
  - General symptom [Recovered/Resolved]
